FAERS Safety Report 9951202 (Version 2)
Quarter: 2014Q1

REPORT INFORMATION
  Report Type: Report from Study
  Country: US (occurrence: US)
  Receive Date: 20140304
  Receipt Date: 20140304
  Transmission Date: 20141002
  Serious: No
  Sender: FDA-Public Use
  Company Number: US-ABBVIE-13P-163-1058942-00

PATIENT
  Age: 59 Year
  Sex: Female

DRUGS (3)
  1. HUMIRA [Suspect]
     Indication: CROHN^S DISEASE
     Dates: start: 20130123
  2. VESICARE [Concomitant]
     Indication: INCONTINENCE
  3. AZATHIOPRINE [Concomitant]
     Indication: CROHN^S DISEASE

REACTIONS (8)
  - Rhinorrhoea [Not Recovered/Not Resolved]
  - Sinus congestion [Not Recovered/Not Resolved]
  - Injection site bruising [Not Recovered/Not Resolved]
  - Injection site bruising [Unknown]
  - Injection site bruising [Unknown]
  - Nasopharyngitis [Unknown]
  - Sinusitis [Unknown]
  - Injection site bruising [Unknown]
